FAERS Safety Report 13909431 (Version 2)
Quarter: 2017Q3

REPORT INFORMATION
  Report Type: Spontaneous
  Country: CN (occurrence: CN)
  Receive Date: 20170828
  Receipt Date: 20170926
  Transmission Date: 20171127
  Serious: Yes (Hospitalization, Other)
  Sender: FDA-Public Use
  Company Number: CN-CONCORDIA PHARMACEUTICALS INC.-E2B_00008347

PATIENT
  Age: 60 Year
  Sex: Male

DRUGS (8)
  1. MORPHINE/PROPOFOL [Concomitant]
     Indication: ANALGESIC THERAPY
  2. ROCURONIUM BROMIDE. [Suspect]
     Active Substance: ROCURONIUM BROMIDE
  3. TACROLIMUS. [Suspect]
     Active Substance: TACROLIMUS
     Indication: IMMUNOSUPPRESSANT DRUG THERAPY
  4. MORPHINE/PROPOFOL [Concomitant]
     Indication: SEDATION
  5. FENTANYL. [Concomitant]
     Active Substance: FENTANYL
  6. PREDNISOLONE. [Suspect]
     Active Substance: PREDNISOLONE
     Indication: IMMUNOSUPPRESSANT DRUG THERAPY
  7. MYCOPHENOLATE MOFETIL. [Suspect]
     Active Substance: MYCOPHENOLATE MOFETIL
     Indication: IMMUNOSUPPRESSANT DRUG THERAPY
  8. PROPOFOL. [Concomitant]
     Active Substance: PROPOFOL

REACTIONS (3)
  - Intensive care unit acquired weakness [Recovering/Resolving]
  - Pneumonia viral [Recovering/Resolving]
  - Quadriplegia [Recovering/Resolving]
